FAERS Safety Report 8532915-7 (Version None)
Quarter: 2012Q3

REPORT INFORMATION
  Report Type: 
  Country: None (occurrence: None)
  Receive Date: 20120724
  Receipt Date: 20120718
  Transmission Date: 20120928
  Serious: Yes (Death)
  Sender: FDA-Public Use
  Company Number: JP-ASTELLAS-2012JP006648

PATIENT
  Age: 63 Year
  Sex: Male

DRUGS (12)
  1. RITUXIMAB [Concomitant]
     Indication: CHEMOTHERAPY
     Dosage: 670 MG, UNKNOWN/D
     Route: 065
  2. FUNGUARD [Suspect]
     Indication: CANDIDIASIS
     Dosage: 150 MG, UNKNOWN/D
     Route: 065
  3. DOPAMINE HCL [Concomitant]
     Dosage: 5 UNK, UNK
     Route: 042
  4. VINCRISTINE [Concomitant]
     Indication: CHEMOTHERAPY
     Dosage: 0.7 MG, UNKNOWN/D
     Route: 065
  5. PREDNISOLONE [Concomitant]
     Indication: CHEMOTHERAPY
     Dosage: 40 MG, UNKNOWN/D
     Route: 065
  6. PREDNISOLONE [Concomitant]
     Dosage: 80 MG, UNKNOWN/D
     Route: 065
  7. CIPROFLOXACIN [Concomitant]
     Indication: RENAL FAILURE
     Dosage: 200 MG, UNK
     Route: 065
  8. ETOPOSIDE [Concomitant]
     Indication: CHEMOTHERAPY
     Dosage: 66 MG, UNKNOWN/D
     Route: 065
  9. FUNGUARD [Suspect]
     Indication: DEVICE RELATED INFECTION
     Dosage: 100 MG, UNKNOWN/D
     Route: 041
  10. PIPERACILLINE/TAZOBACTAM [Concomitant]
     Indication: RENAL FAILURE
     Dosage: 2.25 G, UNK
     Route: 065
  11. CYCLOPHOSPHAMIDE [Concomitant]
     Indication: CHEMOTHERAPY
     Dosage: 330 MG, UNKNOWN/D
     Route: 065
  12. DOXORUBICIN HCL [Concomitant]
     Indication: CHEMOTHERAPY
     Dosage: 17 MG, UNKNOWN/D
     Route: 065

REACTIONS (1)
  - ZYGOMYCOSIS [None]
